FAERS Safety Report 8425764-1 (Version None)
Quarter: 2012Q2

REPORT INFORMATION
  Report Type: 
  Country: None (occurrence: None)
  Receive Date: 20120606
  Receipt Date: 20120606
  Transmission Date: 20120825
  Serious: Yes (Other)
  Sender: FDA-Public Use
  Company Number: None

PATIENT
  Age: 45 Year
  Sex: Female
  Weight: 77.3 kg

DRUGS (5)
  1. YAZ [Concomitant]
  2. AMBIEN [Concomitant]
  3. CYMBALTA [Suspect]
     Indication: DEPRESSION
     Dosage: 04/01/2012 INCREASED TO 90 MG
  4. NAPROXEN (ALEVE) [Concomitant]
  5. ACIPHEX [Concomitant]

REACTIONS (1)
  - TACHYCARDIA [None]
